FAERS Safety Report 19372849 (Version 1)
Quarter: 2021Q2

REPORT INFORMATION
  Report Type: Spontaneous
  Country: US (occurrence: US)
  Receive Date: 20210603
  Receipt Date: 20210603
  Transmission Date: 20210717
  Serious: No
  Sender: FDA-Public Use
  Company Number: US-PFIZER INC-2021507471

PATIENT
  Age: 67 Year
  Sex: Female
  Weight: 64.8 kg

DRUGS (2)
  1. PREMARIN [Suspect]
     Active Substance: ESTROGENS, CONJUGATED
     Indication: ATROPHIC VULVOVAGINITIS
     Dosage: 1 G (PLACE 1G VAGINALLY THREE TIMES A WEEK FOR 90 DAYS)
     Route: 067
  2. PREMARIN [Suspect]
     Active Substance: ESTROGENS, CONJUGATED
     Indication: BREAST PAIN

REACTIONS (2)
  - Off label use [Unknown]
  - Breast pain [Unknown]
